FAERS Safety Report 13034501 (Version 2)
Quarter: 2017Q1

REPORT INFORMATION
  Report Type: Spontaneous
  Country: JP (occurrence: JP)
  Receive Date: 20161216
  Receipt Date: 20170103
  Transmission Date: 20170428
  Serious: Yes (Hospitalization)
  Sender: FDA-Public Use
  Company Number: JP-ROCHE-1864117

PATIENT
  Age: 65 Year
  Sex: Female
  Weight: 43 kg

DRUGS (19)
  1. TRASTUZUMAB EMTANSINE [Suspect]
     Active Substance: ADO-TRASTUZUMAB EMTANSINE
     Indication: BREAST CANCER
     Route: 041
     Dates: start: 20161108
  2. LOXOPROFEN [Concomitant]
     Active Substance: LOXOPROFEN
     Indication: CANCER PAIN
     Route: 065
     Dates: start: 20160616
  3. LAFUTIDINE [Concomitant]
     Active Substance: LAFUTIDINE
     Indication: ABDOMINAL DISCOMFORT
     Route: 065
     Dates: start: 20151006
  4. BETAMETHASONE. [Concomitant]
     Active Substance: BETAMETHASONE
     Indication: BRAIN OEDEMA
     Route: 065
     Dates: start: 20161014
  5. ETIZOLAM [Concomitant]
     Active Substance: ETIZOLAM
     Indication: INSOMNIA
     Route: 065
     Dates: start: 20160616
  6. RESTAMIN [Concomitant]
     Active Substance: DIPHENHYDRAMINE
     Route: 065
     Dates: start: 20161025, end: 20161106
  7. MUCOPOLYSACCHARIDE POLYSULFURIC ACID ESTER [Concomitant]
     Indication: DRY SKIN
     Route: 065
     Dates: start: 20150825
  8. RINDERON V [Concomitant]
     Active Substance: BETAMETHASONE VALERATE
     Indication: BRAIN OEDEMA
     Route: 065
     Dates: start: 20161014, end: 20161107
  9. MECOBALAMIN [Concomitant]
     Active Substance: METHYLCOBALAMIN
     Indication: PERIPHERAL SENSORY NEUROPATHY
     Route: 065
     Dates: start: 20160927, end: 20161115
  10. FLUCORT [Concomitant]
     Route: 065
     Dates: start: 20161107
  11. RANMARK [Concomitant]
     Active Substance: DENOSUMAB
     Route: 065
     Dates: start: 20161014
  12. GLYCEREB [Concomitant]
     Route: 065
     Dates: start: 20161014, end: 20161107
  13. DIFENIDOL HYDROCHLORIDE [Concomitant]
     Active Substance: DIPHENIDOL HYDROCHLORIDE
     Indication: METASTASES TO CENTRAL NERVOUS SYSTEM
     Dosage: 25MG
     Route: 065
     Dates: start: 20160927
  14. CALCIUM CARBONATE. [Concomitant]
     Active Substance: CALCIUM CARBONATE
  15. COLECALCIFEROL [Concomitant]
     Active Substance: CHOLECALCIFEROL
  16. EYECARE [Concomitant]
     Indication: DRY EYE
     Route: 065
     Dates: start: 20151228
  17. ADENOSINE TRIPHOSPHATE DISODIUM [Concomitant]
     Active Substance: ADENOSINE TRIPHOSPHATE DISODIUM
     Indication: METASTASES TO CENTRAL NERVOUS SYSTEM
     Dosage: 10%
     Route: 065
     Dates: start: 20161027, end: 20161115
  18. DENOTAS [Concomitant]
     Active Substance: CALCIUM CARBONATE\CHOLECALCIFEROL\MAGNESIUM CARBONATE
     Route: 065
     Dates: start: 20150714
  19. MOSAPRIDE CITRATE [Concomitant]
     Active Substance: MOSAPRIDE CITRATE
     Indication: ABDOMINAL DISCOMFORT
     Route: 065
     Dates: start: 20151022, end: 20161115

REACTIONS (1)
  - Drug-induced liver injury [Recovered/Resolved]

NARRATIVE: CASE EVENT DATE: 20161115
